FAERS Safety Report 5550131-8 (Version None)
Quarter: 2007Q4

REPORT INFORMATION
  Report Type: 
  Country: None (occurrence: None)
  Receive Date: 20071212
  Receipt Date: 20070424
  Transmission Date: 20080405
  Serious: No
  Sender: FDA-Public Use
  Company Number: US-AMGEN-KDL214723

PATIENT
  Sex: Male
  Weight: 86.7 kg

DRUGS (4)
  1. ENBREL [Suspect]
     Indication: PSORIASIS
     Route: 058
     Dates: start: 20060801, end: 20070320
  2. ADVAIR DISKUS 100/50 [Concomitant]
  3. ALLERGY MEDICATION NOS [Concomitant]
  4. UNSPECIFIED MEDICATION [Concomitant]
     Route: 001

REACTIONS (2)
  - COUGH [None]
  - PULMONARY CONGESTION [None]
